FAERS Safety Report 16710282 (Version 1)
Quarter: 2019Q3

REPORT INFORMATION
  Report Type: Report from Study
  Country: CO (occurrence: CO)
  Receive Date: 20190816
  Receipt Date: 20190816
  Transmission Date: 20191004
  Serious: Yes (Death)
  Sender: FDA-Public Use
  Company Number: CO-ASTRAZENECA-2019SF17683

PATIENT
  Age: 31837 Day
  Sex: Female

DRUGS (1)
  1. FASLODEX [Suspect]
     Active Substance: FULVESTRANT
     Indication: BREAST CANCER FEMALE
     Dosage: 2 SYRINGES 250 MG EACH ONE, 500 MG MONTHLY
     Route: 030
     Dates: start: 20160418, end: 20181008

REACTIONS (1)
  - Death [Fatal]

NARRATIVE: CASE EVENT DATE: 20181008
